FAERS Safety Report 23276996 (Version 1)
Quarter: 2023Q4

REPORT INFORMATION
  Report Type: Spontaneous
  Country: US (occurrence: US)
  Receive Date: 20231208
  Receipt Date: 20231208
  Transmission Date: 20240109
  Serious: Yes (Other)
  Sender: FDA-Public Use
  Company Number: US-MLMSERVICE-2023112146763461

PATIENT
  Age: 29 Year
  Sex: Male

DRUGS (6)
  1. CISPLATIN [Suspect]
     Active Substance: CISPLATIN
     Indication: Rhabdomyosarcoma
  2. IFOSFAMIDE [Suspect]
     Active Substance: IFOSFAMIDE
     Indication: Rhabdomyosarcoma
  3. ETOPOSIDE [Concomitant]
     Active Substance: ETOPOSIDE
     Indication: Rhabdomyosarcoma
  4. CISPLATIN [Suspect]
     Active Substance: CISPLATIN
     Indication: Testicular cancer metastatic
  5. ETOPOSIDE [Concomitant]
     Active Substance: ETOPOSIDE
     Indication: Testicular cancer metastatic
  6. IFOSFAMIDE [Suspect]
     Active Substance: IFOSFAMIDE
     Indication: Testicular cancer metastatic

REACTIONS (3)
  - Renal tubular injury [Recovered/Resolved]
  - Renal salt-wasting syndrome [Recovered/Resolved]
  - Off label use [Unknown]
